FAERS Safety Report 17967026 (Version 1)
Quarter: 2020Q2

REPORT INFORMATION
  Report Type: Spontaneous
  Country: US (occurrence: US)
  Receive Date: 20200629
  Receipt Date: 20200629
  Transmission Date: 20200714
  Serious: No
  Sender: FDA-Public Use
  Company Number: None

PATIENT
  Age: 76 Year
  Sex: Male

DRUGS (1)
  1. FLUDROCORTISONE (FLUDROCORTISONE ACETATE 0.1MG TAB) [Suspect]
     Active Substance: FLUDROCORTISONE ACETATE
     Route: 048
     Dates: start: 20190118

REACTIONS (1)
  - Hypokalaemia [None]

NARRATIVE: CASE EVENT DATE: 20200602
